FAERS Safety Report 9055148 (Version 1)
Quarter: 2013Q1

REPORT INFORMATION
  Report Type: Report from Study
  Country: CA (occurrence: CA)
  Receive Date: 20130206
  Receipt Date: 20130206
  Transmission Date: 20140127
  Serious: Yes (Other)
  Sender: FDA-Public Use
  Company Number: CA-JNJFOC-20130114960

PATIENT
  Sex: Female
  Weight: 62.4 kg

DRUGS (15)
  1. REMICADE [Suspect]
     Indication: COLITIS ULCERATIVE
     Route: 042
     Dates: start: 20120615
  2. POTASSIUM [Concomitant]
     Route: 065
  3. ASACOL [Concomitant]
     Route: 065
  4. LOSEC [Concomitant]
     Route: 065
  5. ATENOLOL [Concomitant]
     Route: 065
  6. RAMIPRIL [Concomitant]
     Route: 065
  7. FUROSEMIDE [Concomitant]
     Route: 065
  8. CALCIUM [Concomitant]
     Route: 065
  9. VITAMIN D [Concomitant]
     Route: 065
  10. SALBUTAMOL [Concomitant]
     Route: 065
  11. BECLOMETASONE [Concomitant]
     Route: 065
  12. BABY ASPIRIN [Concomitant]
     Route: 065
  13. METHYLDOPA [Concomitant]
     Route: 065
  14. PREDNISONE [Concomitant]
     Route: 065
  15. ZOPICLONE [Concomitant]
     Route: 065

REACTIONS (2)
  - Fall [Unknown]
  - Movement disorder [Unknown]
